FAERS Safety Report 17014880 (Version 1)
Quarter: 2019Q4

REPORT INFORMATION
  Report Type: Spontaneous
  Country: US (occurrence: US)
  Receive Date: 20191111
  Receipt Date: 20191111
  Transmission Date: 20200122
  Serious: Yes (Other)
  Sender: FDA-Public Use
  Company Number: US-SCIEGEN PHARMACEUTICALS INC-2019SCILIT00347

PATIENT
  Age: 16 Year
  Sex: Female

DRUGS (4)
  1. LAMOTRIGINE TABLETS [Suspect]
     Active Substance: LAMOTRIGINE
  2. LEVETIRACETAM. [Suspect]
     Active Substance: LEVETIRACETAM
  3. OXCARBAZEPINE. [Suspect]
     Active Substance: OXCARBAZEPINE
  4. TETRABENAZINE. [Suspect]
     Active Substance: TETRABENAZINE

REACTIONS (5)
  - Loss of personal independence in daily activities [Recovering/Resolving]
  - Drug ineffective [None]
  - Hypersensitivity [Recovered/Resolved]
  - Therapeutic product cross-reactivity [None]
  - Rash maculo-papular [Recovered/Resolved]
